FAERS Safety Report 10070388 (Version 2)
Quarter: 2014Q2

REPORT INFORMATION
  Report Type: Spontaneous
  Country: DE (occurrence: DE)
  Receive Date: 20140410
  Receipt Date: 20140410
  Transmission Date: 20141212
  Serious: Yes (Death, Life-Threatening, Hospitalization)
  Sender: FDA-Public Use
  Company Number: DE-B.I. PHARMACEUTICALS,INC./RIDGEFIELD-2014-BI-05098DE

PATIENT
  Age: 65 Year
  Sex: Female
  Weight: 135 kg

DRUGS (6)
  1. PRADAXA [Suspect]
     Indication: ATRIAL FIBRILLATION
     Dosage: 220 MG
     Route: 048
     Dates: start: 201212, end: 201401
  2. METOHEXAL SUCC 95 [Concomitant]
     Indication: HYPERTENSION
     Dosage: 1 ANZ
     Route: 048
     Dates: start: 200211, end: 201401
  3. LISINOLPRIL COM 20/12,5 [Concomitant]
     Indication: HYPERTENSION
     Dosage: 1 ANZ
     Route: 048
     Dates: end: 201401
  4. MOXONIDIN 0,4 [Concomitant]
     Indication: HYPERTENSION
     Dosage: 1 ANZ
     Route: 048
     Dates: start: 200411, end: 201401
  5. METFORMIN 1000 [Concomitant]
     Indication: TYPE 2 DIABETES MELLITUS
     Dosage: 2 ANZ
     Route: 048
     Dates: start: 200908, end: 201401
  6. VOLTAREN RESONAT [Concomitant]
     Indication: OSTEOARTHRITIS
     Dosage: DOSE PER APPLICATION: 1; DAILY DOSE: 1
     Route: 048
     Dates: start: 1999, end: 201401

REACTIONS (1)
  - Cerebral haemorrhage [Fatal]
